FAERS Safety Report 18534590 (Version 6)
Quarter: 2021Q2

REPORT INFORMATION
  Report Type: Report from Study
  Country: US (occurrence: US)
  Receive Date: 20201123
  Receipt Date: 20210610
  Transmission Date: 20210717
  Serious: Yes (Other)
  Sender: FDA-Public Use
  Company Number: US-BAYER-2020-245729

PATIENT
  Age: 83 Year
  Sex: Female

DRUGS (6)
  1. STIVARGA [Suspect]
     Active Substance: REGORAFENIB
     Indication: GASTROINTESTINAL STROMAL TUMOUR
     Dosage: 100 MG, QD
     Dates: start: 20200912
  2. STIVARGA [Suspect]
     Active Substance: REGORAFENIB
     Indication: GASTROINTESTINAL STROMAL TUMOUR
     Dosage: 80 MG, QD FOR 21 DAYS THEN 7 DAYS OFF
  3. STIVARGA [Suspect]
     Active Substance: REGORAFENIB
     Indication: GASTROINTESTINAL STROMAL TUMOUR
     Dosage: DAILY DOSE 160 MG
     Dates: start: 20201210
  4. STIVARGA [Suspect]
     Active Substance: REGORAFENIB
     Indication: GASTROINTESTINAL STROMAL TUMOUR
     Dosage: 40 MG, QD DAILY
  5. STIVARGA [Suspect]
     Active Substance: REGORAFENIB
     Indication: GASTROINTESTINAL STROMAL TUMOUR
     Dosage: 80 MG, QD
  6. STIVARGA [Suspect]
     Active Substance: REGORAFENIB
     Indication: GASTROINTESTINAL STROMAL TUMOUR
     Dosage: UNK
     Dates: start: 20200822, end: 2020

REACTIONS (18)
  - Urosepsis [Unknown]
  - Skin exfoliation [Not Recovered/Not Resolved]
  - Therapeutic product ineffective [Not Recovered/Not Resolved]
  - Hypertension [Not Recovered/Not Resolved]
  - Skin fissures [Not Recovered/Not Resolved]
  - Alopecia [Not Recovered/Not Resolved]
  - Skin ulcer [None]
  - Chills [Not Recovered/Not Resolved]
  - Diarrhoea [Not Recovered/Not Resolved]
  - Pyrexia [Not Recovered/Not Resolved]
  - Malaise [Not Recovered/Not Resolved]
  - Wrong technique in product usage process [None]
  - Asthenia [None]
  - Urinary tract infection [Unknown]
  - Pain of skin [None]
  - Fatigue [Not Recovered/Not Resolved]
  - Fatigue [None]
  - Weight decreased [Not Recovered/Not Resolved]

NARRATIVE: CASE EVENT DATE: 2020
